FAERS Safety Report 24096173 (Version 2)
Quarter: 2024Q3

REPORT INFORMATION
  Report Type: Spontaneous
  Country: FR (occurrence: FR)
  Receive Date: 20240716
  Receipt Date: 20240830
  Transmission Date: 20241017
  Serious: Yes (Congenital Anomaly, Other)
  Sender: CHEPLAPHARM
  Company Number: None

PATIENT
  Age: 0 Year
  Sex: Female
  Weight: 2.5 kg

DRUGS (3)
  1. HYDROXYUREA [Suspect]
     Active Substance: HYDROXYUREA
     Indication: Essential thrombocythaemia
     Dosage: DAILY DOSE: 1000 MILLIGRAM
     Route: 064
     Dates: start: 20221129, end: 20221206
  2. HYDROXYUREA [Suspect]
     Active Substance: HYDROXYUREA
     Indication: Essential thrombocythaemia
     Dosage: DAILY DOSE: 2000 MILLIGRAM
     Route: 064
     Dates: start: 20221206, end: 20221220
  3. HYDROXYUREA [Suspect]
     Active Substance: HYDROXYUREA
     Indication: Essential thrombocythaemia
     Dosage: DAILY DOSE: 2500 MILLIGRAM
     Route: 064
     Dates: start: 20221220, end: 20221227

REACTIONS (5)
  - Renal malposition [Not Recovered/Not Resolved]
  - Heterotaxia [Not Recovered/Not Resolved]
  - Renal hypoplasia [Not Recovered/Not Resolved]
  - Low birth weight baby [Unknown]
  - Foetal exposure during pregnancy [Recovered/Resolved]

NARRATIVE: CASE EVENT DATE: 20230711
